FAERS Safety Report 16704995 (Version 1)
Quarter: 2019Q3

REPORT INFORMATION
  Report Type: Spontaneous
  Country: DE (occurrence: DE)
  Receive Date: 20190815
  Receipt Date: 20190815
  Transmission Date: 20191004
  Serious: Yes (Hospitalization)
  Sender: FDA-Public Use
  Company Number: DE-PFIZER INC-2019349767

PATIENT
  Age: 45 Year
  Sex: Female

DRUGS (6)
  1. PANTOPRAZOLE [Suspect]
     Active Substance: PANTOPRAZOLE
     Dosage: UNK
     Route: 065
  2. VALPROINSAEURE [Concomitant]
     Active Substance: VALPROIC ACID
     Dosage: 300 UNK
  3. TAVOR (LORAZEPAM) [Concomitant]
     Active Substance: LORAZEPAM
     Dosage: 1 MILLIGRAM
  4. VENLAFAXINE [Concomitant]
     Active Substance: VENLAFAXINE HYDROCHLORIDE
     Dosage: 250 MILLIGRAM, QD
  5. VALPROINSAEURE [Concomitant]
     Active Substance: VALPROIC ACID
     Dosage: 500 MILLIGRAM, QD
  6. TRUXAL [CHLORPROTHIXENE HYDROCHLORIDE] [Concomitant]
     Active Substance: CHLORPROTHIXENE
     Dosage: 50 MILLIGRAM, QD

REACTIONS (6)
  - Erythema [Recovered/Resolved]
  - Cold sweat [Recovered/Resolved]
  - Dizziness [Recovered/Resolved]
  - Rash [Recovered/Resolved]
  - Vomiting [Recovered/Resolved]
  - Nausea [Recovered/Resolved]
